FAERS Safety Report 6994275-2 (Version None)
Quarter: 2010Q3

REPORT INFORMATION
  Report Type: 
  Country: None (occurrence: None)
  Receive Date: 20100917
  Receipt Date: 20100910
  Transmission Date: 20110219
  Serious: Yes (Hospitalization, Other)
  Sender: FDA-Public Use
  Company Number: US-ELI_LILLY_AND_COMPANY-US201009002973

PATIENT
  Sex: Female

DRUGS (2)
  1. HUMALOG [Suspect]
     Indication: DIABETES MELLITUS
  2. LANTUS [Concomitant]

REACTIONS (11)
  - BLOOD GLUCOSE INCREASED [None]
  - CARDIAC FAILURE CONGESTIVE [None]
  - CEREBRAL HAEMORRHAGE [None]
  - CEREBROVASCULAR ACCIDENT [None]
  - DRUG DOSE OMISSION [None]
  - HEAD INJURY [None]
  - HYPOPHAGIA [None]
  - MUSCULAR WEAKNESS [None]
  - MYOCARDIAL INFARCTION [None]
  - RENAL FAILURE [None]
  - WEIGHT DECREASED [None]
